FAERS Safety Report 5594596-4 (Version None)
Quarter: 2008Q1

REPORT INFORMATION
  Report Type: 
  Country: None (occurrence: None)
  Receive Date: 20080117
  Receipt Date: 20070915
  Transmission Date: 20080703
  Serious: No
  Sender: FDA-Public Use
  Company Number: US-ABBOTT-07P-163-0417286-00

PATIENT
  Sex: Female
  Weight: 65.83 kg

DRUGS (7)
  1. TRICOR [Suspect]
     Indication: BLOOD TRIGLYCERIDES INCREASED
     Route: 048
     Dates: start: 20070912, end: 20070914
  2. LEVOTHYROXINE SODIUM [Concomitant]
     Indication: HYPOTHYROIDISM
  3. FLUTICASONE PROPIONATE [Concomitant]
     Indication: SEASONAL ALLERGY
  4. CETIRIZINE HCL [Concomitant]
     Indication: SEASONAL ALLERGY
  5. ASPIRIN [Concomitant]
     Indication: DRUG USE FOR UNKNOWN INDICATION
     Route: 048
  6. VITAMINS [Concomitant]
     Indication: VITAMIN SUPPLEMENTATION
  7. CALCIUM-SANDOZ [Concomitant]
     Indication: MINERAL SUPPLEMENTATION

REACTIONS (7)
  - DISORIENTATION [None]
  - FATIGUE [None]
  - HEADACHE [None]
  - INFLUENZA LIKE ILLNESS [None]
  - MIGRAINE [None]
  - NASOPHARYNGITIS [None]
  - PAIN [None]
